FAERS Safety Report 23554102 (Version 1)
Quarter: 2024Q1

REPORT INFORMATION
  Report Type: Spontaneous
  Country: US (occurrence: None)
  Receive Date: 20240222
  Receipt Date: 20240222
  Transmission Date: 20240410
  Serious: Yes (Hospitalization, Disabling)
  Sender: FDA-Public Use
  Company Number: None

PATIENT
  Age: 55 Year
  Sex: Female
  Weight: 63 kg

DRUGS (12)
  1. LYRICA [Suspect]
     Active Substance: PREGABALIN
     Indication: Fibromyalgia
     Dates: start: 20180101, end: 20211215
  2. DEVICE [Concomitant]
     Active Substance: DEVICE
  3. SYNTHROID [Concomitant]
     Active Substance: LEVOTHYROXINE SODIUM
  4. DEVICE\INSULIN NOS [Concomitant]
     Active Substance: DEVICE\INSULIN NOS
  5. WINLEVI [Concomitant]
     Active Substance: CLASCOTERONE
  6. ASPIRIN [Concomitant]
     Active Substance: ASPIRIN
  7. VITAMIN D NOS [Concomitant]
     Active Substance: VITAMIN D NOS
  8. MAGNESIUM [Concomitant]
     Active Substance: MAGNESIUM
  9. PROBIOTICS NOS [Concomitant]
     Active Substance: PROBIOTICS NOS
  10. OMEPRAZOLE [Concomitant]
     Active Substance: OMEPRAZOLE
  11. CALCIUM [Concomitant]
     Active Substance: CALCIUM
  12. Metanyx(Vit B) [Concomitant]

REACTIONS (8)
  - Dyspnoea [None]
  - Dyspnoea [None]
  - Balance disorder [None]
  - Respiratory disorder [None]
  - Postural orthostatic tachycardia syndrome [None]
  - Autonomic neuropathy [None]
  - Sleep apnoea syndrome [None]
  - Visual impairment [None]

NARRATIVE: CASE EVENT DATE: 20210809
